FAERS Safety Report 8576710-1 (Version None)
Quarter: 2012Q3

REPORT INFORMATION
  Report Type: 
  Country: None (occurrence: None)
  Receive Date: 20120807
  Receipt Date: 20120730
  Transmission Date: 20120928
  Serious: Yes (Hospitalization)
  Sender: FDA-Public Use
  Company Number: IT-GLAXOSMITHKLINE-B0759752A

PATIENT
  Sex: Male

DRUGS (8)
  1. ACYCLOVIR [Suspect]
     Indication: HERPES ZOSTER
     Dosage: 3200MG PER DAY
     Route: 048
     Dates: start: 20111014, end: 20111017
  2. COUMADIN [Concomitant]
     Indication: ATRIAL FIBRILLATION
     Dates: start: 20110810
  3. CORDARONE [Concomitant]
     Indication: ATRIAL FIBRILLATION
     Dates: start: 20080209
  4. ALTIAZEM [Concomitant]
     Dates: start: 20110804
  5. ZANTAC [Concomitant]
     Dates: start: 20110401
  6. CALCIUM CARBONATE [Concomitant]
  7. LEUCOVORIN CALCIUM [Concomitant]
  8. VALIUM [Concomitant]

REACTIONS (5)
  - ATAXIA [None]
  - HYPOKINESIA [None]
  - CONFUSIONAL STATE [None]
  - BRADYPHRENIA [None]
  - OVERDOSE [None]
